FAERS Safety Report 7119018-3 (Version None)
Quarter: 2010Q4

REPORT INFORMATION
  Report Type: 
  Country: None (occurrence: None)
  Receive Date: 20101123
  Receipt Date: 20101117
  Transmission Date: 20110411
  Serious: Yes (Other)
  Sender: FDA-Public Use
  Company Number: A0893021A

PATIENT
  Age: 62 Year
  Sex: Male

DRUGS (3)
  1. VOTRIENT [Suspect]
     Dosage: 800MG PER DAY
     Route: 048
     Dates: start: 20101001
  2. LANTUS [Concomitant]
  3. NOVOLOG [Concomitant]

REACTIONS (5)
  - BLOOD GLUCOSE DECREASED [None]
  - BODY TEMPERATURE DECREASED [None]
  - CONVULSION [None]
  - DIABETIC COMA [None]
  - MEDICATION ERROR [None]
